FAERS Safety Report 19841495 (Version 1)
Quarter: 2021Q3

REPORT INFORMATION
  Report Type: Spontaneous
  Country: KR (occurrence: KR)
  Receive Date: 20210915
  Receipt Date: 20210915
  Transmission Date: 20211014
  Serious: Yes (Hospitalization, Other)
  Sender: FDA-Public Use
  Company Number: KR-PFIZER INC-202101162852

PATIENT

DRUGS (1)
  1. CELEBREX [Suspect]
     Active Substance: CELECOXIB
     Dosage: 200 MG
     Route: 048

REACTIONS (5)
  - Pulmonary embolism [Unknown]
  - Cardiac failure [Unknown]
  - Nephropathy [Unknown]
  - Cardiomegaly [Unknown]
  - Atrial tachycardia [Unknown]
